FAERS Safety Report 24083387 (Version 1)
Quarter: 2024Q3

REPORT INFORMATION
  Report Type: Spontaneous
  Country: IN (occurrence: IN)
  Receive Date: 20240712
  Receipt Date: 20240712
  Transmission Date: 20241017
  Serious: Yes (Hospitalization)
  Sender: STRIDES
  Company Number: IN-STRIDES ARCOLAB LIMITED-2024SP008395

PATIENT
  Age: 74 Year
  Sex: Female

DRUGS (27)
  1. PRAMIPEXOLE DIHYDROCHLORIDE [Suspect]
     Active Substance: PRAMIPEXOLE DIHYDROCHLORIDE
     Indication: Tremor
     Dosage: 0.5 MILLIGRAM, OD
     Route: 065
  2. PRAMIPEXOLE DIHYDROCHLORIDE [Suspect]
     Active Substance: PRAMIPEXOLE DIHYDROCHLORIDE
     Indication: Gait disturbance
     Dosage: UNK (DOSE TAPPERED)
     Route: 065
  3. CARBIDOPA\LEVODOPA [Suspect]
     Active Substance: CARBIDOPA\LEVODOPA
     Indication: Tremor
     Dosage: 250 MILLIGRAM, TID
     Route: 065
  4. CARBIDOPA\LEVODOPA [Suspect]
     Active Substance: CARBIDOPA\LEVODOPA
     Indication: Gait disturbance
     Dosage: UNK (DOSE TAPPERED)
     Route: 065
  5. VALPROATE SODIUM [Suspect]
     Active Substance: VALPROATE SODIUM
     Indication: Paraesthesia
     Dosage: 500 MILLIGRAM, BID
     Route: 065
  6. VALPROATE SODIUM [Suspect]
     Active Substance: VALPROATE SODIUM
     Dosage: UNK (DOSE TAPPERED)
     Route: 065
  7. SPIRONOLACTONE [Concomitant]
     Active Substance: SPIRONOLACTONE
     Indication: Peripheral swelling
     Dosage: 50 MILLIGRAM, OD
     Route: 065
  8. LEVOSULPIRIDE;RABEPRAZOLE [Concomitant]
     Indication: Gastritis prophylaxis
     Dosage: UNK, OD
     Route: 065
  9. GLICLAZIDE [Concomitant]
     Active Substance: GLICLAZIDE
     Indication: Type 2 diabetes mellitus
     Dosage: 60 MILLIGRAM, QD
     Route: 065
  10. ACETAMINOPHEN [Concomitant]
     Active Substance: ACETAMINOPHEN
     Indication: Back pain
     Dosage: 650 MILLIGRAM, BID
     Route: 065
  11. ACETAMINOPHEN [Concomitant]
     Active Substance: ACETAMINOPHEN
     Indication: Arthralgia
  12. ATORVASTATIN [Concomitant]
     Active Substance: ATORVASTATIN
     Indication: Product used for unknown indication
     Dosage: 80 MILLIGRAM, QD
     Route: 065
  13. CHLORDIAZEPOXIDE;CLIDINIUM BROMIDE [Concomitant]
     Indication: Abdominal symptom
     Dosage: UNK, TID
     Route: 065
  14. BETAHISTINE [Concomitant]
     Active Substance: BETAHISTINE
     Indication: Vertigo
     Dosage: 16 MILLIGRAM, TID
     Route: 065
  15. INSULIN GLARGINE [Concomitant]
     Active Substance: INSULIN GLARGINE
     Indication: Type 2 diabetes mellitus
     Dosage: UNK (DOSE: VARYING DOSE)
     Route: 065
  16. VILDAGLIPTIN [Concomitant]
     Active Substance: VILDAGLIPTIN
     Indication: Type 2 diabetes mellitus
     Dosage: 50 MILLIGRAM, QD
     Route: 065
  17. FLUTICASONE [Concomitant]
     Active Substance: FLUTICASONE
     Indication: Product used for unknown indication
     Dosage: UNK, PRN (AS NEEDED)
     Route: 065
  18. FORMOTEROL [Concomitant]
     Active Substance: FORMOTEROL
     Indication: Product used for unknown indication
     Dosage: UNK, PRN (AS NEEDED)
     Route: 065
  19. METFORMIN [Concomitant]
     Active Substance: METFORMIN HYDROCHLORIDE
     Indication: Type 2 diabetes mellitus
     Dosage: 500 MILLIGRAM, TID; (? TAB THREE TIME A DAY)
     Route: 065
  20. ATORVASTATIN;CLOPIDOGREL [Concomitant]
     Indication: Chest pain
     Dosage: UNK
     Route: 065
  21. ETIZOLAM [Concomitant]
     Active Substance: ETIZOLAM
     Indication: Product used for unknown indication
     Dosage: 0.5 MILLIGRAM, QD
     Route: 065
  22. ESCITALOPRAM [Concomitant]
     Active Substance: ESCITALOPRAM OXALATE
     Indication: Product used for unknown indication
     Dosage: 10 MILLIGRAM, QD
     Route: 065
  23. BETHANECHOL [Concomitant]
     Active Substance: BETHANECHOL
     Indication: Urinary retention
     Dosage: 25 MILLIGRAM, TID
     Route: 065
  24. SILODOSIN [Concomitant]
     Active Substance: SILODOSIN
     Indication: Urinary retention
     Dosage: 8 MILLIGRAM, QD
     Route: 065
  25. VITAMIN D [Concomitant]
     Active Substance: VITAMIN D NOS
     Indication: Product used for unknown indication
     Dosage: 6000 UNITS ON WEEKLY BASIS
     Route: 065
  26. CLONAZEPAM;ESCITALOPRAM [Concomitant]
     Indication: Product used for unknown indication
     Dosage: UNK
     Route: 065
  27. AMBROXOL ACEFYLLINATE;MONTELUKAST [Concomitant]
     Indication: Product used for unknown indication
     Dosage: UNK, QD
     Route: 065

REACTIONS (3)
  - Hyponatraemia [Recovered/Resolved]
  - Nausea [Recovered/Resolved]
  - Off label use [Unknown]
